FAERS Safety Report 7922780-0 (Version None)
Quarter: 2011Q4

REPORT INFORMATION
  Report Type: 
  Country: None (occurrence: None)
  Receive Date: 20111117
  Receipt Date: 20110602
  Transmission Date: 20120403
  Serious: No
  Sender: FDA-Public Use
  Company Number: US-ALLERGAN-1107525US

PATIENT
  Age: 47 Year
  Sex: Female

DRUGS (2)
  1. COMBIGAN [Suspect]
     Indication: GLAUCOMA
     Dosage: 1 GTT, SINGLE
     Route: 047
     Dates: start: 20110601, end: 20110601
  2. RESTASIS [Concomitant]
     Indication: DRY EYE
     Dosage: 1 GTT, BID
     Route: 047
     Dates: start: 20110401

REACTIONS (4)
  - HEADACHE [None]
  - EYE IRRITATION [None]
  - VISION BLURRED [None]
  - EYE PAIN [None]
